FAERS Safety Report 8793175 (Version 1)
Quarter: 2012Q4

REPORT INFORMATION
  Report Type: 
  Country: US (occurrence: US)
  Receive Date: 20120918
  Receipt Date: 20120918
  Transmission Date: 20130627
  Serious: Yes (Death)
  Sender: FDA-Public Use
  Company Number: US-ROCHE-1124558

PATIENT
  Sex: Female

DRUGS (6)
  1. AVASTIN [Suspect]
     Indication: RECTOSIGMOID CANCER
     Route: 065
     Dates: start: 20040621
  2. AVASTIN [Suspect]
     Route: 065
     Dates: start: 20040712
  3. AVASTIN [Suspect]
     Route: 065
     Dates: start: 20040726
  4. AVASTIN [Suspect]
     Route: 065
     Dates: start: 20040823
  5. AVASTIN [Suspect]
     Route: 065
     Dates: start: 20040920
  6. AVASTIN [Suspect]
     Route: 065
     Dates: start: 20041025

REACTIONS (1)
  - Death [Fatal]
